FAERS Safety Report 13513089 (Version 2)
Quarter: 2017Q2

REPORT INFORMATION
  Report Type: Spontaneous
  Country: US (occurrence: US)
  Receive Date: 20170504
  Receipt Date: 20170510
  Transmission Date: 20170830
  Serious: Yes (Death, Other)
  Sender: FDA-Public Use
  Company Number: US-HTU-2017US013115

PATIENT
  Age: 61 Year
  Sex: Male

DRUGS (4)
  1. ELOXATIN [Concomitant]
     Active Substance: OXALIPLATIN
     Indication: METASTATIC NEOPLASM
     Dosage: UNK
     Dates: start: 20170421, end: 20170421
  2. 5 FU [Concomitant]
     Active Substance: FLUOROURACIL
     Indication: METASTATIC NEOPLASM
     Dosage: UNK
     Dates: start: 20170421, end: 20170421
  3. LEUCOVORIN. [Concomitant]
     Active Substance: LEUCOVORIN
     Indication: METASTATIC NEOPLASM
     Dosage: UNK
     Dates: start: 20170421, end: 20170421
  4. ALOXI [Suspect]
     Active Substance: PALONOSETRON HYDROCHLORIDE
     Indication: PROPHYLAXIS OF NAUSEA AND VOMITING
     Dosage: 0.25 MG, SINGLE
     Route: 042
     Dates: start: 20170421, end: 20170421

REACTIONS (4)
  - Metastatic neoplasm [Fatal]
  - Disease progression [Fatal]
  - Nausea [Unknown]
  - Vomiting [Unknown]

NARRATIVE: CASE EVENT DATE: 201704
